FAERS Safety Report 16348950 (Version 3)
Quarter: 2019Q2

REPORT INFORMATION
  Report Type: Spontaneous
  Country: US (occurrence: US)
  Receive Date: 20190523
  Receipt Date: 20190625
  Transmission Date: 20190711
  Serious: No
  Sender: FDA-Public Use
  Company Number: US-PFIZER INC-2019221674

PATIENT
  Age: 63 Year
  Sex: Female
  Weight: 51 kg

DRUGS (1)
  1. IBRANCE [Suspect]
     Active Substance: PALBOCICLIB
     Indication: BREAST CANCER METASTATIC
     Dosage: 125 MG, CYCLIC (DAYS 1-21 EVERY 28 DAYS)
     Route: 048
     Dates: start: 20190511

REACTIONS (10)
  - Nausea [Unknown]
  - Axillary pain [Unknown]
  - Sleep disorder [Unknown]
  - Lymph node pain [Unknown]
  - Depressed mood [Unknown]
  - Anxiety [Unknown]
  - Asthenia [Unknown]
  - Muscle spasms [Unknown]
  - Pain [Unknown]
  - Fear [Unknown]

NARRATIVE: CASE EVENT DATE: 201905
